FAERS Safety Report 15413539 (Version 1)
Quarter: 2018Q3

REPORT INFORMATION
  Report Type: Report from Study
  Country: BR (occurrence: BR)
  Receive Date: 20180921
  Receipt Date: 20180921
  Transmission Date: 20181010
  Serious: Yes (Other)
  Sender: FDA-Public Use
  Company Number: BR-JNJFOC-20180728522

PATIENT
  Sex: Male

DRUGS (2)
  1. REMICADE [Suspect]
     Active Substance: INFLIXIMAB
     Indication: CROHN^S DISEASE
     Dosage: 0, 2 AND 6 AND THEN EVERY 2 MONTHS
     Route: 042
     Dates: start: 20180627
  2. PREDSIM [Concomitant]
     Active Substance: PREDNISOLONE
     Route: 065

REACTIONS (2)
  - Drug ineffective [Unknown]
  - Disseminated tuberculosis [Recovering/Resolving]

NARRATIVE: CASE EVENT DATE: 2018
